FAERS Safety Report 7440306-5 (Version None)
Quarter: 2011Q2

REPORT INFORMATION
  Report Type: 
  Country: None (occurrence: None)
  Receive Date: 20110427
  Receipt Date: 20110418
  Transmission Date: 20111010
  Serious: Yes (Other)
  Sender: FDA-Public Use
  Company Number: PHHY2011US32114

PATIENT
  Age: 73 Year
  Sex: Male

DRUGS (9)
  1. AZITHROMYCIN [Interacting]
     Indication: BRONCHITIS
     Dosage: 500 MG, UNK
  2. SIMVASTATIN [Suspect]
     Dosage: 80 MG, UNK
  3. ALLOPURINOL [Concomitant]
     Dosage: UNK UKN, UNK
  4. BUMETANIDE [Concomitant]
     Dosage: UNK UKN, UNK
  5. SIMVASTATIN [Interacting]
     Dosage: 40 MG, UNK
  6. LABETALOL [Concomitant]
     Dosage: UNK UKN, UNK
  7. PREDNISONE [Concomitant]
     Dosage: UNK UKN, UNK
  8. SIMVASTATIN [Interacting]
     Dosage: 80 MG, UNK
  9. AZITHROMYCIN [Interacting]
     Dosage: 250 MG, UNK

REACTIONS (5)
  - MYALGIA [None]
  - BLOOD CREATINE PHOSPHOKINASE INCREASED [None]
  - RHABDOMYOLYSIS [None]
  - BLOOD CREATININE INCREASED [None]
  - DRUG INTERACTION [None]
